FAERS Safety Report 10541840 (Version 1)
Quarter: 2014Q4

REPORT INFORMATION
  Report Type: Spontaneous
  Country: US (occurrence: US)
  Receive Date: 20141024
  Receipt Date: 20141024
  Transmission Date: 20150529
  Serious: Yes (Other)
  Sender: FDA-Public Use
  Company Number: US-NOVEN-14US010082

PATIENT
  Age: 37 Year
  Sex: Female

DRUGS (1)
  1. BRISDELLE [Suspect]
     Active Substance: PAROXETINE MESYLATE
     Indication: MENOPAUSAL SYMPTOMS
     Dosage: 7.5 MG, QD
     Route: 048
     Dates: start: 20140612, end: 20140701

REACTIONS (6)
  - Suicidal ideation [Unknown]
  - Mental disorder [Unknown]
  - Irritability [Unknown]
  - Hot flush [Unknown]
  - Mania [Unknown]
  - Somnolence [Unknown]

NARRATIVE: CASE EVENT DATE: 201406
